FAERS Safety Report 7374475-2 (Version None)
Quarter: 2011Q1

REPORT INFORMATION
  Report Type: 
  Country: None (occurrence: None)
  Receive Date: 20110325
  Receipt Date: 20110104
  Transmission Date: 20110831
  Serious: No
  Sender: FDA-Public Use
  Company Number: US-MYLANLABS-2011S1000485

PATIENT
  Age: 49 Year
  Sex: Male
  Weight: 167.83 kg

DRUGS (6)
  1. HYDROCODONE BITARTRATE [Concomitant]
     Indication: MUSCULOSKELETAL PAIN
  2. LISINOPRIL [Concomitant]
     Indication: BLOOD PRESSURE INCREASED
  3. FENTANYL-100 [Suspect]
     Dosage: CHANGED Q 72 HOURS.
     Route: 062
     Dates: start: 20101001, end: 20110102
  4. SPIRIVA [Concomitant]
     Indication: ASTHMA
  5. ASPIRIN [Concomitant]
     Indication: THROMBOSIS PROPHYLAXIS
  6. FENTANYL-100 [Suspect]
     Indication: MUSCULOSKELETAL PAIN
     Dosage: CHANGED Q 72 HOURS.
     Route: 062
     Dates: start: 20080101, end: 20110102

REACTIONS (6)
  - INSOMNIA [None]
  - HYPERHIDROSIS [None]
  - TREMOR [None]
  - ASTHENIA [None]
  - NAUSEA [None]
  - FEELING COLD [None]
